FAERS Safety Report 11070690 (Version 2)
Quarter: 2016Q2

REPORT INFORMATION
  Report Type: Report from Study
  Country: US (occurrence: US)
  Receive Date: 20150427
  Receipt Date: 20160517
  Transmission Date: 20160815
  Serious: Yes (Hospitalization)
  Sender: FDA-Public Use
  Company Number: US-ACTELION-A-NJ2015-116481

PATIENT
  Age: 9 Year
  Sex: Female

DRUGS (2)
  1. SILDENAFIL. [Concomitant]
     Active Substance: SILDENAFIL
     Dosage: 25 MG, Q6HRS
  2. TRACLEER [Suspect]
     Active Substance: BOSENTAN
     Indication: PULMONARY ARTERIAL HYPERTENSION
     Dosage: UNK
     Route: 048

REACTIONS (20)
  - Epilepsy [Unknown]
  - Right ventricular systolic pressure increased [Unknown]
  - Pulmonary arterial pressure increased [Unknown]
  - Hypothyroidism [Unknown]
  - Respiratory tract congestion [Unknown]
  - Hypotonia [Unknown]
  - Pneumonia [Unknown]
  - Nasopharyngitis [Unknown]
  - Asthma [Unknown]
  - Pulmonary vascular disorder [Unknown]
  - Fatigue [Unknown]
  - Syncope [Unknown]
  - Hyperhidrosis [Unknown]
  - Wheezing [Unknown]
  - Loss of consciousness [Unknown]
  - Dilatation ventricular [Unknown]
  - Right atrial dilatation [Unknown]
  - Pulmonary hypertension [Unknown]
  - Cough [Unknown]
  - Developmental delay [Unknown]
